FAERS Safety Report 22591038 (Version 1)
Quarter: 2023Q2

REPORT INFORMATION
  Report Type: Spontaneous
  Country: NL (occurrence: NL)
  Receive Date: 20230612
  Receipt Date: 20230612
  Transmission Date: 20230721
  Serious: Yes (Life-Threatening, Hospitalization, Other)
  Sender: FDA-Public Use
  Company Number: NL-AMGEN-NLDSP2023089741

PATIENT
  Age: 51 Year
  Sex: Male

DRUGS (7)
  1. ADALIMUMAB [Suspect]
     Active Substance: ADALIMUMAB
     Indication: Ankylosing spondylitis
     Dosage: UNK
     Route: 065
     Dates: start: 201612
  2. FOSINOPRIL [Concomitant]
     Active Substance: FOSINOPRIL
     Indication: Aortic valve incompetence
     Dosage: UNK
     Route: 065
     Dates: start: 201607
  3. FOSINOPRIL [Concomitant]
     Active Substance: FOSINOPRIL
     Indication: Tricuspid valve incompetence
  4. FOSINOPRIL [Concomitant]
     Active Substance: FOSINOPRIL
     Indication: Mitral valve incompetence
  5. EPLERENONE [Concomitant]
     Active Substance: EPLERENONE
     Indication: Tricuspid valve incompetence
     Dosage: UNK
     Route: 065
     Dates: start: 201607
  6. EPLERENONE [Concomitant]
     Active Substance: EPLERENONE
     Indication: Mitral valve incompetence
  7. EPLERENONE [Concomitant]
     Active Substance: EPLERENONE
     Indication: Aortic valve incompetence

REACTIONS (5)
  - Mitral valve stenosis [Unknown]
  - Mitral valve incompetence [Unknown]
  - Tricuspid valve incompetence [Unknown]
  - Aortic valve incompetence [Unknown]
  - Rheumatic heart disease [Unknown]

NARRATIVE: CASE EVENT DATE: 20180101
